FAERS Safety Report 23446870 (Version 2)
Quarter: 2024Q1

REPORT INFORMATION
  Report Type: Report from Study
  Country: MX (occurrence: MX)
  Receive Date: 20240126
  Receipt Date: 20240227
  Transmission Date: 20240409
  Serious: Yes (Hospitalization)
  Sender: FDA-Public Use
  Company Number: MX-AstraZeneca-2024A017690

PATIENT
  Age: 159 Day
  Sex: Female
  Weight: 4.3 kg

DRUGS (5)
  1. SYNAGIS [Suspect]
     Active Substance: PALIVIZUMAB
     Indication: Antiviral prophylaxis
     Dosage: 44 MG, MONTHLY
     Route: 030
     Dates: start: 20231201, end: 20231201
  2. SYNAGIS [Suspect]
     Active Substance: PALIVIZUMAB
     Dosage: 0.65 ML, MONTHLY
     Route: 030
     Dates: start: 20240117, end: 20240117
  3. TIMOLOL [Concomitant]
     Active Substance: TIMOLOL
     Indication: Haemangioma
  4. FLUTICASONE [Concomitant]
     Active Substance: FLUTICASONE
     Indication: Bronchopulmonary dysplasia
  5. VITAMINS A, C AND D [Concomitant]
     Indication: Product used for unknown indication

REACTIONS (2)
  - Cough [Recovered/Resolved]
  - Crying [Recovered/Resolved]

NARRATIVE: CASE EVENT DATE: 20240117
